FAERS Safety Report 7092485-X (Version None)
Quarter: 2010Q4

REPORT INFORMATION
  Report Type: 
  Country: None (occurrence: None)
  Receive Date: 20101108
  Receipt Date: 20101108
  Transmission Date: 20110411
  Serious: Yes (Hospitalization)
  Sender: FDA-Public Use
  Company Number: None

PATIENT
  Age: 48 Year
  Sex: Male
  Weight: 59 kg

DRUGS (1)
  1. MORPHINE [Suspect]
     Indication: PAIN
     Dosage: 1 ML OTHER IV
     Route: 042
     Dates: start: 20101023, end: 20101026

REACTIONS (2)
  - HYPERAESTHESIA [None]
  - PAIN [None]
